FAERS Safety Report 4482181-7 (Version None)
Quarter: 2004Q4

REPORT INFORMATION
  Report Type: 
  Country: None (occurrence: None)
  Receive Date: 20041022
  Receipt Date: 20041015
  Transmission Date: 20050328
  Serious: Yes (Death)
  Sender: FDA-Public Use
  Company Number: PHBS2004IL13854

PATIENT
  Age: 49 Year
  Sex: Male

DRUGS (6)
  1. CYCLOSPORINE [Suspect]
     Indication: STEM CELL TRANSPLANT
     Route: 065
  2. SAMARIUM [153 SM] LEXIDRONAM PENTASODIUM [Concomitant]
     Indication: STEM CELL TRANSPLANT
     Dosage: 6.6 MILLICURIES/KG
     Route: 042
  3. FLUDARABINE [Suspect]
     Indication: STEM CELL TRANSPLANT
     Dosage: 30 MG/M2, QD
     Route: 042
  4. BUSULFAN [Suspect]
     Indication: STEM CELL TRANSPLANT
     Dosage: 3.2 MG/KG, QD
     Route: 042
  5. ANTITHYMOCYTE IMMUNOGLOBULIN [Suspect]
     Indication: STEM CELL TRANSPLANT
     Dosage: 2.5 MG/KG, QD
     Route: 042
  6. ACYCLOVIR [Concomitant]
     Dosage: 800 MG, QID
     Route: 048

REACTIONS (13)
  - CSF PROTEIN INCREASED [None]
  - DISEASE RECURRENCE [None]
  - EPSTEIN-BARR VIRUS INFECTION [None]
  - GUILLAIN-BARRE SYNDROME [None]
  - HYPOAESTHESIA [None]
  - MULTI-ORGAN FAILURE [None]
  - MUSCULAR WEAKNESS [None]
  - NEUROPATHY [None]
  - PARAESTHESIA [None]
  - PARALYSIS [None]
  - RESPIRATORY FAILURE [None]
  - SENSORY DISTURBANCE [None]
  - SEPSIS SYNDROME [None]
